FAERS Safety Report 22002165 (Version 1)
Quarter: 2023Q1

REPORT INFORMATION
  Report Type: Spontaneous
  Country: US (occurrence: US)
  Receive Date: 20230217
  Receipt Date: 20230217
  Transmission Date: 20230417
  Serious: Yes (Other)
  Sender: FDA-Public Use
  Company Number: US-ALKEM LABORATORIES LIMITED-US-ALKEM-2023-01399

PATIENT
  Age: 46 Year
  Sex: Female

DRUGS (1)
  1. BENZONATATE [Suspect]
     Active Substance: BENZONATATE
     Indication: Product used for unknown indication
     Dosage: UNK (TESSALON PERLE)
     Route: 061

REACTIONS (6)
  - Blindness transient [Unknown]
  - Drug abuse [Unknown]
  - Overdose [Unknown]
  - Eye disorder [Unknown]
  - Pain [Unknown]
  - Toxicity to various agents [Unknown]
